FAERS Safety Report 5127939-6 (Version None)
Quarter: 2006Q4

REPORT INFORMATION
  Report Type: 
  Country: None (occurrence: None)
  Receive Date: 20061016
  Receipt Date: 20061009
  Transmission Date: 20070319
  Serious: Yes (Hospitalization)
  Sender: FDA-Public Use
  Company Number: DE-BOEHRINGER INGELHEIM PHARMACEUTICALS, INC.-2006-DE-05306DE

PATIENT
  Sex: Female
  Weight: 68 kg

DRUGS (1)
  1. CATAPRESAN 150 [Suspect]
     Route: 048

REACTIONS (6)
  - BRADYCARDIA [None]
  - CIRCULATORY COLLAPSE [None]
  - DRUG ABUSER [None]
  - HYPOTENSION [None]
  - SOMNOLENCE [None]
  - SUICIDE ATTEMPT [None]
